FAERS Safety Report 14813042 (Version 1)
Quarter: 2018Q2

REPORT INFORMATION
  Report Type: Spontaneous
  Country: FR (occurrence: FR)
  Receive Date: 20180426
  Receipt Date: 20180426
  Transmission Date: 20180711
  Serious: Yes (Other)
  Sender: FDA-Public Use
  Company Number: FR-MERCK KGAA-2046544

PATIENT
  Age: 61 Year
  Sex: Female

DRUGS (1)
  1. NOVOTHYROX [Suspect]
     Active Substance: LEVOTHYROXINE SODIUM
     Indication: PRODUCT USED FOR UNKNOWN INDICATION
     Dates: start: 201704

REACTIONS (23)
  - General physical health deterioration [None]
  - Hyperhidrosis [None]
  - Suicidal ideation [None]
  - Fatigue [None]
  - Alopecia [None]
  - Dizziness [None]
  - Irritability [None]
  - Loss of personal independence in daily activities [None]
  - Affect lability [None]
  - Muscle spasms [None]
  - Insomnia [None]
  - Mood altered [None]
  - Feeling abnormal [None]
  - Seborrhoeic dermatitis [None]
  - Weight increased [None]
  - Blood 25-hydroxycholecalciferol decreased [None]
  - Negative thoughts [None]
  - Burning sensation [None]
  - Asthenia [None]
  - Hot flush [None]
  - Abdominal distension [None]
  - Eczema [None]
  - Headache [None]

NARRATIVE: CASE EVENT DATE: 2017
